FAERS Safety Report 15549788 (Version 2)
Quarter: 2018Q4

REPORT INFORMATION
  Report Type: Report from Study
  Country: IN (occurrence: IN)
  Receive Date: 20181025
  Receipt Date: 20181109
  Transmission Date: 20190205
  Serious: Yes (Other)
  Sender: FDA-Public Use
  Company Number: PHHY2018IN121781

PATIENT
  Age: 66 Year
  Sex: Female

DRUGS (1)
  1. SPEXIB [Suspect]
     Active Substance: CERITINIB
     Indication: NON-SMALL CELL LUNG CANCER METASTATIC
     Dosage: 750 MG, QD
     Route: 048

REACTIONS (7)
  - Metastases to central nervous system [Unknown]
  - Wheezing [Recovered/Resolved]
  - Cough [Recovering/Resolving]
  - Malignant neoplasm progression [Unknown]
  - Visual impairment [Unknown]
  - Bacterial infection [Recovered/Resolved]
  - Hypersensitivity [Recovered/Resolved]

NARRATIVE: CASE EVENT DATE: 20161119
